FAERS Safety Report 21589558 (Version 3)
Quarter: 2023Q2

REPORT INFORMATION
  Report Type: Spontaneous
  Country: GB (occurrence: GB)
  Receive Date: 20221114
  Receipt Date: 20230405
  Transmission Date: 20230722
  Serious: Yes (Other)
  Sender: FDA-Public Use
  Company Number: GB-GSKCCFEMEA-Case-01607392_AE-64141

PATIENT

DRUGS (1)
  1. FLUTICASONE FUROATE [Suspect]
     Active Substance: FLUTICASONE FUROATE
     Indication: Ear pruritus
     Dosage: 2 PUFF(S), QD ONCE SPRAY IN EACH NOSTRIL
     Route: 055
     Dates: start: 20220728, end: 20220905

REACTIONS (14)
  - Nasal oedema [Not Recovered/Not Resolved]
  - Rhinalgia [Unknown]
  - Hypopnoea [Not Recovered/Not Resolved]
  - Skin discolouration [Unknown]
  - Condition aggravated [Unknown]
  - Pruritus [Unknown]
  - Swollen tongue [Unknown]
  - Plicated tongue [Unknown]
  - Rash [Unknown]
  - Skin abrasion [Unknown]
  - Nasal congestion [Unknown]
  - Tooth injury [Unknown]
  - Mucosal discolouration [Unknown]
  - Oral lichen planus [Unknown]

NARRATIVE: CASE EVENT DATE: 20220905
